FAERS Safety Report 18259873 (Version 2)
Quarter: 2020Q3

REPORT INFORMATION
  Report Type: Report from Study
  Country: CR (occurrence: CR)
  Receive Date: 20200912
  Receipt Date: 20200919
  Transmission Date: 20201103
  Serious: Yes (Life-Threatening, Other)
  Sender: FDA-Public Use
  Company Number: NVSC2020CR232438

PATIENT
  Sex: Female

DRUGS (1)
  1. SCAPHO [Suspect]
     Active Substance: SECUKINUMAB
     Indication: PSORIATIC ARTHROPATHY
     Dosage: 300 MG, ONCE A WEEK
     Route: 058
     Dates: start: 20200819

REACTIONS (13)
  - Ear infection [Not Recovered/Not Resolved]
  - Rhinorrhoea [Recovering/Resolving]
  - Tinnitus [Recovering/Resolving]
  - Headache [Recovering/Resolving]
  - Rhinitis [Recovering/Resolving]
  - Pain [Not Recovered/Not Resolved]
  - Pruritus [Not Recovered/Not Resolved]
  - Deafness [Recovering/Resolving]
  - Feeling abnormal [Recovering/Resolving]
  - Hypersensitivity [Recovering/Resolving]
  - Dysstasia [Not Recovered/Not Resolved]
  - Ear pain [Not Recovered/Not Resolved]
  - Psoriasis [Not Recovered/Not Resolved]
